FAERS Safety Report 5398388-0 (Version None)
Quarter: 2007Q3

REPORT INFORMATION
  Report Type: 
  Country: None (occurrence: None)
  Receive Date: 20070726
  Receipt Date: 20070426
  Transmission Date: 20080115
  Serious: No
  Sender: FDA-Public Use
  Company Number: US-AMGEN-KDL222112

PATIENT
  Sex: Female

DRUGS (3)
  1. PROCRIT [Suspect]
     Indication: PRE-EXISTING DISEASE
     Dates: start: 20060201
  2. RIBAVIRIN [Concomitant]
     Dates: start: 20060201
  3. PEGYLATED INTERFERON ALFA-2B [Concomitant]
     Dates: start: 20060201

REACTIONS (8)
  - ABDOMINAL PAIN UPPER [None]
  - FAECES DISCOLOURED [None]
  - HEPATITIS C [None]
  - LOSS OF CONSCIOUSNESS [None]
  - NAUSEA [None]
  - SKIN DISCOLOURATION [None]
  - SKIN FISSURES [None]
  - SKIN HAEMORRHAGE [None]
